FAERS Safety Report 23303568 (Version 2)
Quarter: 2023Q4

REPORT INFORMATION
  Report Type: Report from Study
  Country: LU (occurrence: LU)
  Receive Date: 20231215
  Receipt Date: 20231218
  Transmission Date: 20240110
  Serious: No
  Sender: FDA-Public Use
  Company Number: LU-Vifor (International) Inc.-VIT-2023-09179

PATIENT
  Age: 62 Year
  Sex: Male

DRUGS (5)
  1. FILSPARI [Suspect]
     Active Substance: SPARSENTAN
     Indication: Neuropathy peripheral
     Route: 048
     Dates: start: 20230828, end: 20231027
  2. FEBUXOSTAT [Concomitant]
     Active Substance: FEBUXOSTAT
     Dates: start: 20230313
  3. ATORVASTATIN CALCIUM\EZETIMIBE [Concomitant]
     Active Substance: ATORVASTATIN CALCIUM\EZETIMIBE
     Dosage: 10/40 MG
     Dates: start: 20230313
  4. CHOLECALCIFEROL [Concomitant]
     Active Substance: CHOLECALCIFEROL
     Dates: start: 20230313
  5. DAPAGLIFLOZIN [Concomitant]
     Active Substance: DAPAGLIFLOZIN
     Dates: start: 20230613

REACTIONS (2)
  - Illness [Unknown]
  - Liver function test increased [Not Recovered/Not Resolved]

NARRATIVE: CASE EVENT DATE: 20230901
